FAERS Safety Report 24006271 (Version 1)
Quarter: 2024Q2

REPORT INFORMATION
  Report Type: Spontaneous
  Country: US (occurrence: US)
  Receive Date: 20240624
  Receipt Date: 20240624
  Transmission Date: 20240716
  Serious: Yes (Hospitalization)
  Sender: FDA-Public Use
  Company Number: US-PFIZER INC-202400197895

PATIENT
  Age: 73 Year
  Sex: Female
  Weight: 73.94 kg

DRUGS (3)
  1. IBRANCE [Suspect]
     Active Substance: PALBOCICLIB
     Indication: Neoplasm malignant
     Dosage: EVERY DAY FOR 3 WEEKS AND THEN 1 WEEK OFF
     Route: 048
  2. ACETAMINOPHEN\HYDROCODONE BITARTRATE [Concomitant]
     Active Substance: ACETAMINOPHEN\HYDROCODONE BITARTRATE
     Indication: Musculoskeletal discomfort
     Dosage: 1 DF, 3X/DAY
  3. XANAX [Concomitant]
     Active Substance: ALPRAZOLAM
     Indication: Anxiety
     Dosage: 1 MG

REACTIONS (2)
  - Coronary artery occlusion [Unknown]
  - Fall [Unknown]

NARRATIVE: CASE EVENT DATE: 20230101
